FAERS Safety Report 5479424-X (Version None)
Quarter: 2007Q4

REPORT INFORMATION
  Report Type: 
  Country: None (occurrence: None)
  Receive Date: 20071003
  Receipt Date: 20071003
  Transmission Date: 20080405
  Serious: No
  Sender: FDA-Public Use
  Company Number: None

PATIENT
  Sex: Female
  Weight: 86 kg

DRUGS (1)
  1. TAXOL [Suspect]
     Dosage: 35 MG
     Dates: start: 20070921, end: 20070921

REACTIONS (1)
  - ANAPHYLACTIC REACTION [None]
